FAERS Safety Report 6467333-9 (Version None)
Quarter: 2009Q4

REPORT INFORMATION
  Report Type: 
  Country: None (occurrence: None)
  Receive Date: 20091202
  Receipt Date: 20091120
  Transmission Date: 20100525
  Serious: Yes (Other)
  Sender: FDA-Public Use
  Company Number: FR-CELGENEUS-056-20785-09100177

PATIENT
  Sex: Female

DRUGS (2)
  1. THALIDOMIDE [Suspect]
     Indication: DRUG EXPOSURE BEFORE PREGNANCY
     Route: 048
     Dates: end: 20090701
  2. THALIDOMIDE [Suspect]
     Route: 048
     Dates: end: 20090224

REACTIONS (1)
  - PREGNANCY [None]
